FAERS Safety Report 20394763 (Version 1)
Quarter: 2022Q1

REPORT INFORMATION
  Report Type: Other
  Country: ES (occurrence: None)
  Receive Date: 20220130
  Receipt Date: 20220130
  Transmission Date: 20220423
  Serious: Yes (Other)
  Sender: FDA-Public Use
  Company Number: ES-Square-000042

PATIENT
  Age: 83 Year
  Sex: Female

DRUGS (8)
  1. ACYCLOVIR [Suspect]
     Active Substance: ACYCLOVIR
     Indication: Uveitis
     Dosage: 10 MG PER KG EVERY 8 HOURS
     Route: 042
  2. PREDNISONE [Suspect]
     Active Substance: PREDNISONE
     Indication: Uveitis
     Dosage: 60 MG PER DAY
     Route: 048
  3. DEXAMETHASONE [Suspect]
     Active Substance: DEXAMETHASONE
     Indication: Uveitis
     Dosage: EVERY 2 HOURS
     Route: 031
  4. CYCLOPENTOLATE [Suspect]
     Active Substance: CYCLOPENTOLATE
     Indication: Uveitis
     Dosage: EVERY 8 HOURS
     Route: 031
  5. ACYCLOVIR [Suspect]
     Active Substance: ACYCLOVIR
     Indication: Necrotising retinitis
     Dosage: 10 MG PER KG EVERY 8 HOURS
     Route: 042
  6. PREDNISONE [Suspect]
     Active Substance: PREDNISONE
     Indication: Necrotising retinitis
     Dosage: 60 MG PER DAY
     Route: 048
  7. DEXAMETHASONE [Suspect]
     Active Substance: DEXAMETHASONE
     Indication: Necrotising retinitis
     Dosage: EVERY 2 HOURS
     Route: 031
  8. CYCLOPENTOLATE [Suspect]
     Active Substance: CYCLOPENTOLATE
     Indication: Necrotising retinitis
     Dosage: EVERY 8 HOURS
     Route: 031

REACTIONS (3)
  - Retinal ischaemia [Recovering/Resolving]
  - Disease progression [Recovering/Resolving]
  - Papilloedema [Recovering/Resolving]
